FAERS Safety Report 20327523 (Version 2)
Quarter: 2022Q1

REPORT INFORMATION
  Report Type: Report from Study
  Country: US (occurrence: US)
  Receive Date: 20220112
  Receipt Date: 20220128
  Transmission Date: 20220423
  Serious: Yes (Hospitalization, Other)
  Sender: FDA-Public Use
  Company Number: US-SA-SAC20220110000645

PATIENT
  Age: 57 Year
  Sex: Female
  Weight: 101.5 kg

DRUGS (3)
  1. INVESTIGATIONAL PRODUCT [Suspect]
     Active Substance: INVESTIGATIONAL PRODUCT
     Indication: Sarcoidosis
     Dosage: 200 MG, QOW
     Route: 058
     Dates: start: 20211118
  2. PLACEBO [Suspect]
     Active Substance: UNSPECIFIED INGREDIENT
     Indication: Sarcoidosis
     Dosage: 200 MG, QOW
     Route: 058
     Dates: start: 20211118
  3. SARILUMAB [Suspect]
     Active Substance: SARILUMAB
     Indication: Sarcoidosis
     Dosage: 200 MG, QOW
     Route: 058
     Dates: start: 20211118

REACTIONS (2)
  - Pulmonary embolism [Unknown]
  - Product use in unapproved indication [Unknown]

NARRATIVE: CASE EVENT DATE: 20211118
